FAERS Safety Report 11974768 (Version 1)
Quarter: 2016Q1

REPORT INFORMATION
  Report Type: Report from Study
  Country: US (occurrence: US)
  Receive Date: 20160128
  Receipt Date: 20160128
  Transmission Date: 20160526
  Serious: Yes (Other)
  Sender: FDA-Public Use
  Company Number: US-ABBVIE-15K-163-1396097-00

PATIENT
  Age: 16 Year
  Sex: Male

DRUGS (6)
  1. HUMIRA [Suspect]
     Active Substance: ADALIMUMAB
     Route: 058
     Dates: start: 20150423, end: 20150423
  2. MESALAMINE. [Concomitant]
     Active Substance: MESALAMINE
     Indication: PRODUCT USED FOR UNKNOWN INDICATION
     Route: 054
  3. HUMIRA [Suspect]
     Active Substance: ADALIMUMAB
     Indication: CROHN^S DISEASE
     Route: 065
     Dates: start: 20150409, end: 20150409
  4. HUMIRA [Suspect]
     Active Substance: ADALIMUMAB
     Route: 058
     Dates: start: 20150507, end: 20150520
  5. HUMIRA [Suspect]
     Active Substance: ADALIMUMAB
     Route: 058
     Dates: start: 20150520, end: 20150604
  6. AUGMENTIN [Concomitant]
     Active Substance: AMOXICILLIN\CLAVULANATE POTASSIUM
     Indication: PRODUCT USED FOR UNKNOWN INDICATION
     Route: 048

REACTIONS (1)
  - Drug ineffective [Not Recovered/Not Resolved]

NARRATIVE: CASE EVENT DATE: 20150409
